FAERS Safety Report 8358080-7 (Version None)
Quarter: 2012Q2

REPORT INFORMATION
  Report Type: 
  Country: None (occurrence: None)
  Receive Date: 20120514
  Receipt Date: 20120502
  Transmission Date: 20120825
  Serious: Yes (Other)
  Sender: FDA-Public Use
  Company Number: CA-ROCHE-GNE280883

PATIENT
  Sex: Female

DRUGS (8)
  1. XOLAIR [Suspect]
     Dates: start: 20090623
  2. ATROVENT [Concomitant]
     Indication: PRODUCT USED FOR UNKNOWN INDICATION
  3. XOLAIR [Suspect]
     Indication: ASTHMA
     Dosage: 300 MG, 1/MONTH
     Route: 058
     Dates: start: 20070612
  4. XOLAIR [Suspect]
     Dates: start: 20100105
  5. XOLAIR [Suspect]
     Route: 058
     Dates: start: 20091110
  6. XOLAIR [Suspect]
     Route: 058
     Dates: start: 20100302
  7. XOLAIR [Suspect]
     Route: 058
     Dates: start: 20100407
  8. XOLAIR [Suspect]
     Route: 058
     Dates: start: 20090105

REACTIONS (17)
  - PNEUMONIA [None]
  - RHINORRHOEA [None]
  - DYSPNOEA [None]
  - PRODUCTIVE COUGH [None]
  - STRESS [None]
  - LUNG DISORDER [None]
  - HEART RATE INCREASED [None]
  - COUGH [None]
  - INFLUENZA [None]
  - FATIGUE [None]
  - HYPERSENSITIVITY [None]
  - BRONCHITIS [None]
  - SINUS CONGESTION [None]
  - BLOOD PRESSURE DECREASED [None]
  - DYSPNOEA EXERTIONAL [None]
  - ASTHMA [None]
  - HEADACHE [None]
